FAERS Safety Report 9924861 (Version 1)
Quarter: 2014Q1

REPORT INFORMATION
  Report Type: Spontaneous
  Country: KR (occurrence: None)
  Receive Date: 20140221
  Receipt Date: 20140221
  Transmission Date: 20141002
  Serious: Yes (Hospitalization)
  Sender: FDA-Public Use
  Company Number: 2014P1001363

PATIENT
  Age: 65 Year
  Sex: Female

DRUGS (1)
  1. LITHIUM [Suspect]
     Indication: BIPOLAR II DISORDER

REACTIONS (11)
  - Memory impairment [None]
  - Disorientation [None]
  - Cognitive disorder [None]
  - Myoclonus [None]
  - Cerebellar syndrome [None]
  - Ataxia [None]
  - Toxicity to various agents [None]
  - Tremor [None]
  - Mini mental status examination abnormal [None]
  - Electroencephalogram abnormal [None]
  - Cerebral hypoperfusion [None]
